FAERS Safety Report 15325578 (Version 2)
Quarter: 2018Q3

REPORT INFORMATION
  Report Type: Spontaneous
  Country: US (occurrence: US)
  Receive Date: 20180828
  Receipt Date: 20180828
  Transmission Date: 20181010
  Serious: Yes (Other)
  Sender: FDA-Public Use
  Company Number: US-BAUSCH-BL-2018-022930

PATIENT
  Age: 51 Year
  Sex: Male

DRUGS (25)
  1. LORAZEPAM. [Suspect]
     Active Substance: LORAZEPAM
     Indication: STATUS EPILEPTICUS
     Route: 065
     Dates: start: 201503
  2. LEVETIRACETAM. [Suspect]
     Active Substance: LEVETIRACETAM
     Route: 065
  3. PHENYTOIN. [Suspect]
     Active Substance: PHENYTOIN
     Indication: STATUS EPILEPTICUS
     Route: 065
     Dates: start: 2015
  4. PHENYTOIN. [Suspect]
     Active Substance: PHENYTOIN
     Route: 065
     Dates: start: 2015
  5. PHENYTOIN. [Suspect]
     Active Substance: PHENYTOIN
     Route: 065
  6. MIDAZOLAM [Suspect]
     Active Substance: MIDAZOLAM HYDROCHLORIDE
     Indication: STATUS EPILEPTICUS
     Route: 065
     Dates: start: 2015, end: 2015
  7. METHYLPREDNISOLONE. [Suspect]
     Active Substance: METHYLPREDNISOLONE
     Indication: STATUS EPILEPTICUS
     Route: 065
     Dates: start: 2015, end: 2015
  8. PERAMPANEL [Suspect]
     Active Substance: PERAMPANEL
     Indication: STATUS EPILEPTICUS
     Route: 065
     Dates: start: 2015
  9. VALPROIC ACID. [Suspect]
     Active Substance: VALPROIC ACID
     Indication: STATUS EPILEPTICUS
     Route: 065
     Dates: start: 2015, end: 2015
  10. LACOSAMIDE. [Suspect]
     Active Substance: LACOSAMIDE
     Indication: STATUS EPILEPTICUS
     Route: 065
     Dates: start: 2015
  11. LEVETIRACETAM. [Suspect]
     Active Substance: LEVETIRACETAM
     Route: 065
     Dates: start: 2015
  12. KETAMINE [Suspect]
     Active Substance: KETAMINE
     Indication: STATUS EPILEPTICUS
     Route: 065
     Dates: start: 2015, end: 2015
  13. LEVETIRACETAM. [Suspect]
     Active Substance: LEVETIRACETAM
     Dosage: OVER THE NEXT 24 HOURS.
     Route: 065
     Dates: start: 201503
  14. PHENYTOIN. [Suspect]
     Active Substance: PHENYTOIN
     Route: 065
     Dates: start: 201503
  15. LACOSAMIDE. [Suspect]
     Active Substance: LACOSAMIDE
     Route: 065
     Dates: start: 201503, end: 2015
  16. LEVETIRACETAM. [Suspect]
     Active Substance: LEVETIRACETAM
     Indication: STATUS EPILEPTICUS
     Route: 065
     Dates: start: 2015
  17. PHENYTOIN. [Suspect]
     Active Substance: PHENYTOIN
     Route: 065
     Dates: start: 201503
  18. LORAZEPAM. [Suspect]
     Active Substance: LORAZEPAM
     Route: 065
     Dates: start: 2015, end: 2015
  19. LACOSAMIDE. [Suspect]
     Active Substance: LACOSAMIDE
     Route: 065
  20. TOPIRAMATE. [Suspect]
     Active Substance: TOPIRAMATE
     Indication: STATUS EPILEPTICUS
     Route: 065
     Dates: start: 2015, end: 2015
  21. LACOSAMIDE. [Suspect]
     Active Substance: LACOSAMIDE
     Route: 065
     Dates: start: 2015
  22. FELBAMATE. [Suspect]
     Active Substance: FELBAMATE
     Indication: STATUS EPILEPTICUS
     Route: 065
     Dates: start: 2015, end: 2015
  23. ZONISAMIDE. [Suspect]
     Active Substance: ZONISAMIDE
     Indication: STATUS EPILEPTICUS
     Route: 065
     Dates: start: 2015, end: 2015
  24. CARBAMAZEPINE. [Suspect]
     Active Substance: CARBAMAZEPINE
     Indication: STATUS EPILEPTICUS
     Route: 065
     Dates: start: 2015
  25. CARBAMAZEPINE. [Suspect]
     Active Substance: CARBAMAZEPINE
     Route: 065

REACTIONS (1)
  - Drug ineffective [Recovered/Resolved]

NARRATIVE: CASE EVENT DATE: 2015
